FAERS Safety Report 4808392-6 (Version None)
Quarter: 2005Q4

REPORT INFORMATION
  Report Type: 
  Country: None (occurrence: None)
  Receive Date: 20051021
  Receipt Date: 20030428
  Transmission Date: 20060501
  Serious: Yes (Life-Threatening)
  Sender: FDA-Public Use
  Company Number: FR_030402347

PATIENT
  Age: 84 Year
  Sex: Female
  Weight: 60 kg

DRUGS (3)
  1. ZYPREXA [Suspect]
     Dates: end: 20030120
  2. BUSPAR [Concomitant]
  3. KARDEGIC (ACETYLSALICYLATE LYSINE) [Concomitant]

REACTIONS (4)
  - BRONCHITIS [None]
  - PULMONARY EMBOLISM [None]
  - SUPERINFECTION [None]
  - THYROID DISORDER [None]
